FAERS Safety Report 17977949 (Version 2)
Quarter: 2020Q3

REPORT INFORMATION
  Report Type: Spontaneous
  Country: DE (occurrence: DE)
  Receive Date: 20200703
  Receipt Date: 20200709
  Transmission Date: 20201103
  Serious: Yes (Other)
  Sender: FDA-Public Use
  Company Number: NVSC2020DE185059

PATIENT
  Sex: Male

DRUGS (2)
  1. MIFLONIDE BREEZHALER [Suspect]
     Active Substance: BUDESONIDE
     Indication: PRODUCT USED FOR UNKNOWN INDICATION
     Dosage: 230 UG
     Route: 065
  2. ULTIBRO BREEZHALER [Concomitant]
     Active Substance: GLYCOPYRRONIUM\INDACATEROL
     Indication: PRODUCT USED FOR UNKNOWN INDICATION
     Route: 065

REACTIONS (5)
  - Haemorrhage [Unknown]
  - Fear [Unknown]
  - Incorrect dose administered [Unknown]
  - Device malfunction [Unknown]
  - Coma [Unknown]

NARRATIVE: CASE EVENT DATE: 2016
